FAERS Safety Report 4777301-0 (Version None)
Quarter: 2005Q3

REPORT INFORMATION
  Report Type: 
  Country: None (occurrence: None)
  Receive Date: 20050915
  Receipt Date: 20050902
  Transmission Date: 20060218
  Serious: Yes (Other)
  Sender: FDA-Public Use
  Company Number: 2005124139

PATIENT
  Age: 55 Year
  Sex: Male

DRUGS (3)
  1. CELEBREX [Suspect]
     Indication: ARTHRITIS
     Dosage: (200 MG, 1 IN 1 D), ORAL
     Route: 048
     Dates: start: 20050101, end: 20050801
  2. CELEBREX [Suspect]
     Indication: PAIN
     Dosage: (200 MG, 1 IN 1 D), ORAL
     Route: 048
     Dates: start: 20050101, end: 20050801
  3. ALL OTHER THERAPEUTIC PRODUCTS (ALL OTHER THERAPEUTIC PRODUCTS) [Suspect]
     Indication: NEOPLASM MALIGNANT
     Dates: start: 20050101

REACTIONS (5)
  - CHEST PAIN [None]
  - GRIP STRENGTH DECREASED [None]
  - PAIN [None]
  - SPINAL CORD NEOPLASM [None]
  - WEIGHT DECREASED [None]
